FAERS Safety Report 7002414-2 (Version None)
Quarter: 2010Q3

REPORT INFORMATION
  Report Type: 
  Country: None (occurrence: None)
  Receive Date: 20100920
  Receipt Date: 20071009
  Transmission Date: 20110219
  Serious: Yes (Other)
  Sender: FDA-Public Use
  Company Number: US-ASTRAZENECA-2006UW23346

PATIENT
  Age: 27 Year
  Sex: Female
  Weight: 57.2 kg

DRUGS (16)
  1. SEROQUEL [Suspect]
     Indication: DEPRESSION
     Route: 048
     Dates: start: 20011201, end: 20021201
  2. SEROQUEL [Suspect]
     Indication: ANXIETY
     Route: 048
     Dates: start: 20011201, end: 20021201
  3. SEROQUEL [Suspect]
     Indication: INSOMNIA
     Route: 048
     Dates: start: 20011201, end: 20021201
  4. SEROQUEL [Suspect]
     Dosage: 50MG -100 MG
     Route: 048
     Dates: start: 20020118
  5. SEROQUEL [Suspect]
     Dosage: 50MG -100 MG
     Route: 048
     Dates: start: 20020118
  6. SEROQUEL [Suspect]
     Dosage: 50MG -100 MG
     Route: 048
     Dates: start: 20020118
  7. PREDNISONE [Concomitant]
     Indication: SYSTEMIC LUPUS ERYTHEMATOSUS
     Route: 048
     Dates: start: 20020225
  8. ZOLOFT [Concomitant]
     Indication: DEPRESSION
     Route: 048
     Dates: start: 20000106
  9. PROTONIX [Concomitant]
     Indication: ABDOMINAL DISCOMFORT
     Route: 048
     Dates: start: 20040519
  10. ATIVAN [Concomitant]
     Indication: ANXIETY
     Route: 048
     Dates: start: 20040519
  11. AMBIEN [Concomitant]
     Indication: SLEEP DISORDER
     Route: 048
     Dates: start: 20040519
  12. UROCIT-K [Concomitant]
     Route: 048
     Dates: start: 20000606
  13. CELEXA [Concomitant]
     Route: 048
     Dates: start: 20020118
  14. VALIUM [Concomitant]
     Route: 048
     Dates: start: 20020118
  15. NEURONTIN [Concomitant]
     Route: 048
     Dates: start: 20030317
  16. CYTOXAN [Concomitant]
     Route: 048
     Dates: start: 20020404

REACTIONS (1)
  - PANCREATITIS [None]
